FAERS Safety Report 10984966 (Version 1)
Quarter: 2015Q2

REPORT INFORMATION
  Report Type: Spontaneous
  Country: US (occurrence: US)
  Receive Date: 20150403
  Receipt Date: 20150403
  Transmission Date: 20150821
  Serious: Yes (Other)
  Sender: FDA-Public Use
  Company Number: US-GLAXOSMITHKLINE-US2015GSK044531

PATIENT
  Sex: Male
  Weight: 77.98 kg

DRUGS (3)
  1. VOTRIENT [Suspect]
     Active Substance: PAZOPANIB HYDROCHLORIDE
     Indication: RENAL CANCER
     Dosage: 200 MG, QD
     Route: 048
     Dates: start: 201402
  2. ALPRAZOLAM TABLET [Concomitant]
     Dosage: 0.25 MG, UNK
  3. HYDROMORPHONE HYDROCHLORIDE TABLET [Concomitant]
     Dosage: 4 MG, UNK

REACTIONS (3)
  - Nausea [Unknown]
  - Haematemesis [Unknown]
  - Skin discolouration [Unknown]
